FAERS Safety Report 17450429 (Version 1)
Quarter: 2020Q1

REPORT INFORMATION
  Report Type: Spontaneous
  Country: US (occurrence: US)
  Receive Date: 20200221
  Receipt Date: 20200221
  Transmission Date: 20200409
  Serious: Yes (Other)
  Sender: FDA-Public Use
  Company Number: None

PATIENT
  Age: 74 Year
  Sex: Female
  Weight: 74.7 kg

DRUGS (13)
  1. GADAVIST [Suspect]
     Active Substance: GADOBUTROL
     Indication: MAGNETIC RESONANCE IMAGING
     Dates: start: 20200207
  2. FLUTICASON [Concomitant]
     Active Substance: FLUTICASONE
  3. PROBIOTIC [Concomitant]
     Active Substance: PROBIOTICS NOS
  4. ADVAIR HFA [Concomitant]
     Active Substance: FLUTICASONE PROPIONATE\SALMETEROL XINAFOATE
  5. FLONASE [Concomitant]
     Active Substance: FLUTICASONE PROPIONATE
  6. MULTIVITAMIN [Concomitant]
     Active Substance: VITAMINS
  7. AMLOPIDINE 10MG [Concomitant]
  8. BENAZAPRIL 40MG [Concomitant]
  9. RANITIDINE. [Concomitant]
     Active Substance: RANITIDINE
  10. SYMBICORT [Concomitant]
     Active Substance: BUDESONIDE\FORMOTEROL FUMARATE DIHYDRATE
  11. CPAP [Concomitant]
     Active Substance: DEVICE
  12. ATORVASTATIN 10MG [Concomitant]
     Active Substance: ATORVASTATIN
  13. CETINZINE [Concomitant]

REACTIONS (11)
  - Nausea [None]
  - Dizziness [None]
  - Speech disorder [None]
  - Contrast media reaction [None]
  - Pruritus [None]
  - Somnolence [None]
  - Hypertension [None]
  - Peripheral swelling [None]
  - Feeling abnormal [None]
  - Malaise [None]
  - Tremor [None]

NARRATIVE: CASE EVENT DATE: 20200207
